FAERS Safety Report 15494986 (Version 1)
Quarter: 2018Q4

REPORT INFORMATION
  Report Type: Spontaneous
  Country: IT (occurrence: IT)
  Receive Date: 20181012
  Receipt Date: 20181012
  Transmission Date: 20190205
  Serious: Yes (Hospitalization, Other)
  Sender: FDA-Public Use
  Company Number: IT-GLAXOSMITHKLINE-IT2017204243

PATIENT
  Age: 54 Year
  Sex: Male

DRUGS (2)
  1. DICLOFENAC [Suspect]
     Active Substance: DICLOFENAC
     Indication: MYALGIA
     Dosage: 200 MG/KG, UNK
     Route: 065
  2. ACETYLSALICYLIC ACID [Suspect]
     Active Substance: ASPIRIN
     Indication: PRODUCT USED FOR UNKNOWN INDICATION
     Dosage: 160 MG/KG, UNK (LOW DOSE)
     Route: 065

REACTIONS (4)
  - Gastric ulcer haemorrhage [Recovering/Resolving]
  - Product use in unapproved indication [Unknown]
  - Melaena [Recovering/Resolving]
  - Incorrect dose administered [Unknown]
